FAERS Safety Report 8160010-8 (Version None)
Quarter: 2012Q1

REPORT INFORMATION
  Report Type: 
  Country: None (occurrence: None)
  Receive Date: 20120223
  Receipt Date: 20120217
  Transmission Date: 20120608
  Serious: Yes (Hospitalization)
  Sender: FDA-Public Use
  Company Number: BE-GLAXOSMITHKLINE-B0528635D

PATIENT
  Sex: Female
  Weight: 77.3 kg

DRUGS (4)
  1. EFFEXOR XR [Concomitant]
     Dosage: 75MG PER DAY
     Route: 048
  2. LAPATINIB [Suspect]
     Indication: BREAST CANCER METASTATIC
     Route: 048
     Dates: start: 20080123
  3. ALPRAZOLAM [Concomitant]
     Indication: ANXIETY
     Dosage: .5MG PER DAY
     Route: 048
  4. CAPECITABINE [Suspect]
     Indication: BREAST CANCER METASTATIC
     Route: 048
     Dates: start: 20080123

REACTIONS (2)
  - PYREXIA [None]
  - OPPORTUNISTIC INFECTION [None]
